FAERS Safety Report 7167847-2 (Version None)
Quarter: 2010Q4

REPORT INFORMATION
  Report Type: 
  Country: None (occurrence: None)
  Receive Date: 20101216
  Receipt Date: 20101123
  Transmission Date: 20110411
  Serious: Yes (Hospitalization)
  Sender: FDA-Public Use
  Company Number: US-US-EMD SERONO, INC.-7028977

PATIENT
  Sex: Female
  Weight: 64 kg

DRUGS (4)
  1. REBIF [Suspect]
     Indication: MULTIPLE SCLEROSIS
     Route: 058
     Dates: start: 20100525, end: 20100801
  2. REBIF [Suspect]
     Route: 058
     Dates: start: 20101122
  3. UNSPECIFIED MEDICATION [Concomitant]
     Indication: PYREXIA
  4. INSULIN SHOTS [Concomitant]
     Indication: DIABETES MELLITUS

REACTIONS (9)
  - DECREASED APPETITE [None]
  - DRUG HYPERSENSITIVITY [None]
  - FATIGUE [None]
  - LOCALISED INFECTION [None]
  - MULTIPLE SCLEROSIS RELAPSE [None]
  - NAUSEA [None]
  - PNEUMONIA [None]
  - STAPHYLOCOCCAL INFECTION [None]
  - THROMBOSIS [None]
